FAERS Safety Report 8258990-5 (Version None)
Quarter: 2012Q2

REPORT INFORMATION
  Report Type: 
  Country: None (occurrence: None)
  Receive Date: 20120404
  Receipt Date: 20120326
  Transmission Date: 20120825
  Serious: Yes (Life-Threatening, Congenital Anomaly)
  Sender: FDA-Public Use
  Company Number: US-JNJFOC-20120313463

PATIENT

DRUGS (4)
  1. REMICADE [Suspect]
     Indication: FOETAL EXPOSURE DURING PREGNANCY
     Route: 064
     Dates: start: 20111207, end: 20111207
  2. AZATHIOPRINE [Suspect]
     Indication: FOETAL EXPOSURE DURING PREGNANCY
     Route: 064
  3. MESALAMINE [Suspect]
     Indication: FOETAL EXPOSURE DURING PREGNANCY
     Route: 064
  4. REMICADE [Suspect]
     Route: 064
     Dates: start: 20070401

REACTIONS (2)
  - FOETAL DISORDER [None]
  - DWARFISM [None]
